FAERS Safety Report 4756764-0 (Version None)
Quarter: 2005Q3

REPORT INFORMATION
  Report Type: 
  Country: None (occurrence: None)
  Receive Date: 20050830
  Receipt Date: 20050608
  Transmission Date: 20060218
  Serious: Yes (Hospitalization, Other)
  Sender: FDA-Public Use
  Company Number: US-GILEAD-2005-0008404

PATIENT
  Sex: Male
  Weight: 91.254 kg

DRUGS (7)
  1. VIREAD [Suspect]
     Indication: HIV INFECTION
     Route: 048
     Dates: start: 20020601, end: 20040308
  2. KALETRA [Concomitant]
     Indication: HIV INFECTION
     Route: 048
     Dates: start: 20001222, end: 20040323
  3. KALETRA [Concomitant]
     Dates: start: 20041129
  4. VIDEX [Concomitant]
     Indication: HIV INFECTION
     Route: 048
     Dates: start: 20031028, end: 20040323
  5. EPIVIR [Concomitant]
     Indication: HIV INFECTION
     Route: 048
     Dates: start: 20010502, end: 20040323
  6. EPIVIR [Concomitant]
     Dates: start: 20041129
  7. METOPROLOL [Concomitant]
     Indication: HYPERTENSION
     Route: 048
     Dates: start: 20001027

REACTIONS (7)
  - GLOMERULONEPHRITIS MEMBRANOUS [None]
  - INJURY [None]
  - NEPHRITIS INTERSTITIAL [None]
  - PAIN [None]
  - RENAL FAILURE CHRONIC [None]
  - RENAL TUBULAR DISORDER [None]
  - WEIGHT INCREASED [None]
